FAERS Safety Report 7804952-9 (Version None)
Quarter: 2011Q4

REPORT INFORMATION
  Report Type: 
  Country: None (occurrence: None)
  Receive Date: 20111010
  Receipt Date: 20111005
  Transmission Date: 20120403
  Serious: Yes (Other)
  Sender: FDA-Public Use
  Company Number: GXKR2011DE02982

PATIENT
  Sex: Male

DRUGS (1)
  1. LEUCOVORIN CALCIUM [Suspect]

REACTIONS (2)
  - NEPHRITIS [None]
  - HAEMATURIA [None]
